FAERS Safety Report 10164566 (Version 1)
Quarter: 2014Q2

REPORT INFORMATION
  Report Type: Spontaneous
  Country: US (occurrence: US)
  Receive Date: 20140510
  Receipt Date: 20140510
  Transmission Date: 20141212
  Serious: No
  Sender: FDA-Public Use
  Company Number: US-BRISTOL-MYERS SQUIBB COMPANY-19552348

PATIENT
  Age: 68 Year
  Sex: Male
  Weight: 112.01 kg

DRUGS (3)
  1. BYDUREON [Suspect]
     Indication: TYPE 2 DIABETES MELLITUS
  2. GLUCOPHAGE [Suspect]
     Dosage: 1DF:1 UNITS NOS
  3. LANTUS [Suspect]
     Dosage: 1DF:75 UNITS

REACTIONS (1)
  - Blood glucose increased [Unknown]
